FAERS Safety Report 4584377-2 (Version None)
Quarter: 2005Q1

REPORT INFORMATION
  Report Type: 
  Country: None (occurrence: None)
  Receive Date: 20050216
  Receipt Date: 20050210
  Transmission Date: 20050727
  Serious: Yes (Other)
  Sender: FDA-Public Use
  Company Number: CA-BRISTOL-MYERS SQUIBB COMPANY-12861993

PATIENT
  Age: 55 Year
  Sex: Female

DRUGS (2)
  1. HYDROXYUREA [Suspect]
     Indication: CHRONIC MYELOID LEUKAEMIA
  2. INTERFERON [Suspect]
     Indication: CHRONIC MYELOID LEUKAEMIA
     Dosage: DOSE:  5 MU DAILY

REACTIONS (1)
  - GANGRENE [None]
